FAERS Safety Report 4570592-0 (Version None)
Quarter: 2005Q1

REPORT INFORMATION
  Report Type: 
  Country: None (occurrence: None)
  Receive Date: 20050204
  Receipt Date: 20050131
  Transmission Date: 20050727
  Serious: Yes (Hospitalization)
  Sender: FDA-Public Use
  Company Number: S05-USA-00304-01

PATIENT
  Age: 22 Year
  Sex: Male

DRUGS (2)
  1. WELLBUTRIN [Suspect]
     Indication: DEPRESSION
     Route: 048
     Dates: end: 20050117
  2. LEXAPRO [Suspect]
     Indication: DEPRESSION
     Route: 065
     Dates: end: 20050117

REACTIONS (2)
  - DISEASE RECURRENCE [None]
  - PANCREATITIS [None]
